FAERS Safety Report 5247898-5 (Version None)
Quarter: 2007Q1

REPORT INFORMATION
  Report Type: 
  Country: None (occurrence: None)
  Receive Date: 20070223
  Receipt Date: 20070207
  Transmission Date: 20070707
  Serious: Yes (Hospitalization)
  Sender: FDA-Public Use
  Company Number: PHEH2007US01768

PATIENT
  Age: 61 Year
  Sex: Female

DRUGS (2)
  1. LOTREL [Suspect]
     Indication: HYPERTENSION
     Dosage: 5/10 MG, QD
     Route: 048
     Dates: start: 20020201
  2. PREMARIN [Concomitant]
     Indication: MENOPAUSAL SYMPTOMS
     Dosage: 0.45 MG, QD
     Route: 048
     Dates: start: 19970101

REACTIONS (2)
  - HEART RATE IRREGULAR [None]
  - HYSTERECTOMY [None]
